FAERS Safety Report 4766863-5 (Version None)
Quarter: 2005Q3

REPORT INFORMATION
  Report Type: 
  Country: None (occurrence: None)
  Receive Date: 20050909
  Receipt Date: 20050824
  Transmission Date: 20060218
  Serious: Yes (Death)
  Sender: FDA-Public Use
  Company Number: 2005-DE-03418GD

PATIENT
  Age: 52 Year
  Sex: Female

DRUGS (3)
  1. CYCLOPHOSPHAMIDE [Suspect]
     Indication: STEM CELL TRANSPLANT
     Dosage: HIGH DOSE
     Dates: start: 19970101
  2. T-PA (ALTEPLASE) [Suspect]
     Indication: VENOOCCLUSIVE DISEASE
     Dates: start: 19970101
  3. HEPARIN [Suspect]
     Indication: VENOOCCLUSIVE DISEASE
     Dates: start: 19970101

REACTIONS (6)
  - DRUG INEFFECTIVE [None]
  - ENCEPHALOPATHY [None]
  - HEPATIC FAILURE [None]
  - MULTI-ORGAN FAILURE [None]
  - RENAL IMPAIRMENT [None]
  - VENOOCCLUSIVE LIVER DISEASE [None]
